FAERS Safety Report 16728585 (Version 3)
Quarter: 2021Q1

REPORT INFORMATION
  Report Type: Spontaneous
  Country: IE (occurrence: IE)
  Receive Date: 20190822
  Receipt Date: 20210127
  Transmission Date: 20210419
  Serious: Yes (Hospitalization, Other)
  Sender: FDA-Public Use
  Company Number: IE-SUN PHARMACEUTICAL INDUSTRIES LTD-2019R1-217157

PATIENT
  Age: 2 Year
  Sex: Male
  Weight: 11.6 kg

DRUGS (2)
  1. SALBUTAMOL [Suspect]
     Active Substance: ALBUTEROL
     Indication: COUGH
     Dosage: EVERY FOUR HOUR
     Route: 055
  2. AMOXICILLIN. [Concomitant]
     Active Substance: AMOXICILLIN
     Indication: COUGH
     Dosage: UNK
     Route: 042

REACTIONS (4)
  - Lethargy [Recovered/Resolved]
  - Metabolic alkalosis [Recovered/Resolved]
  - Condition aggravated [Recovered/Resolved]
  - Hypokalaemia [Recovered/Resolved]
